FAERS Safety Report 9290829 (Version 2)
Quarter: 2013Q2

REPORT INFORMATION
  Report Type: Spontaneous
  Country: GB (occurrence: None)
  Receive Date: 20130513
  Receipt Date: 20130620
  Transmission Date: 20140414
  Serious: Yes (Hospitalization)
  Sender: FDA-Public Use
  Company Number: 7207901

PATIENT
  Sex: Male

DRUGS (4)
  1. LEVOTHYROXINE [Suspect]
     Indication: DEPRESSION
     Dosage: 50 MCG?
     Dates: end: 200812
  2. VENLAFAXINE (VENLAFAXINE) (VENLAFAXINE) [Suspect]
     Indication: DEPRESSION
     Dosage: STOPPED?
     Dates: end: 200902
  3. QUETIAPINE [Suspect]
     Indication: DEPRESSION
     Dosage: 50 MG (50 MG, NOCTE)?
     Dates: end: 200905
  4. METHADONE (METHADONE) (METHADONE) [Suspect]
     Indication: DRUG DEPENDENCE
     Dates: end: 1997

REACTIONS (6)
  - Neuroleptic malignant syndrome [None]
  - Paranoia [None]
  - Headache [None]
  - Grimacing [None]
  - Hallucinations, mixed [None]
  - Aggression [None]
